FAERS Safety Report 25119881 (Version 2)
Quarter: 2025Q2

REPORT INFORMATION
  Report Type: Report from Study
  Country: CA (occurrence: CA)
  Receive Date: 20250325
  Receipt Date: 20250519
  Transmission Date: 20250717
  Serious: Yes (Other)
  Sender: TAKEDA
  Company Number: CA-TAKEDA-2025TUS029923

PATIENT
  Sex: Male

DRUGS (8)
  1. VEDOLIZUMAB [Suspect]
     Active Substance: VEDOLIZUMAB
     Indication: Crohn^s disease
  2. VEDOLIZUMAB [Suspect]
     Active Substance: VEDOLIZUMAB
  3. LASIX [Concomitant]
     Active Substance: FUROSEMIDE
  4. ANUSOL HC [Concomitant]
     Active Substance: HYDROCORTISONE
  5. ELIQUIS [Concomitant]
     Active Substance: APIXABAN
  6. ENTRESTO [Concomitant]
     Active Substance: SACUBITRIL\VALSARTAN
  7. SPIRONOLACTONE [Concomitant]
     Active Substance: SPIRONOLACTONE
  8. DIGOXIN [Concomitant]
     Active Substance: DIGOXIN

REACTIONS (1)
  - Cataract [Recovered/Resolved]
